FAERS Safety Report 23978785 (Version 1)
Quarter: 2024Q2

REPORT INFORMATION
  Report Type: Report from Study
  Country: BR (occurrence: BR)
  Receive Date: 20240615
  Receipt Date: 20240615
  Transmission Date: 20240715
  Serious: Yes (Life-Threatening)
  Sender: FDA-Public Use
  Company Number: BR-JNJFOC-20240631206

PATIENT
  Age: 57 Year
  Sex: Male

DRUGS (1)
  1. IBRUTINIB [Suspect]
     Active Substance: IBRUTINIB
     Indication: Chronic lymphocytic leukaemia
     Route: 048
     Dates: start: 20171227

REACTIONS (2)
  - Neurocryptococcosis [Unknown]
  - Central nervous system haemorrhage [Unknown]

NARRATIVE: CASE EVENT DATE: 20191015
